FAERS Safety Report 6907359-1 (Version None)
Quarter: 2010Q3

REPORT INFORMATION
  Report Type: 
  Country: None (occurrence: None)
  Receive Date: 20100802
  Receipt Date: 20100722
  Transmission Date: 20110219
  Serious: Yes (Death)
  Sender: FDA-Public Use
  Company Number: GER/UKI/10/0014638

PATIENT
  Age: 49 Year
  Sex: Male
  Weight: 88.2 kg

DRUGS (5)
  1. SERTRALINE HYDROCHLORIDE [Suspect]
     Indication: DEPRESSION
     Dosage: 100 MG, ORAL
     Route: 048
     Dates: start: 20091022, end: 20100708
  2. ATROVENT [Concomitant]
  3. DESLORATADINE (DESLORATADINE) [Concomitant]
  4. QVAR 40 [Concomitant]
  5. SEREVENT [Concomitant]

REACTIONS (1)
  - SUBARACHNOID HAEMORRHAGE [None]
